FAERS Safety Report 8273011-6 (Version None)
Quarter: 2012Q2

REPORT INFORMATION
  Report Type: 
  Country: None (occurrence: None)
  Receive Date: 20120411
  Receipt Date: 20120403
  Transmission Date: 20120825
  Serious: No
  Sender: FDA-Public Use
  Company Number: US-JNJFOC-20120401816

PATIENT
  Sex: Male
  Weight: 70.31 kg

DRUGS (8)
  1. VALIUM [Concomitant]
     Route: 065
  2. CYCLOBENZAPRINE [Concomitant]
     Indication: MUSCLE RELAXANT THERAPY
     Dosage: 10 MG AS NEEDED
     Route: 048
  3. DURAGESIC-100 [Suspect]
     Indication: PAIN
     Route: 062
     Dates: start: 20110101
  4. LYRICA [Concomitant]
     Indication: NERVOUS SYSTEM DISORDER
     Dosage: 75 MG/1-2 TIMES A DAY/AS NEEDED
     Route: 048
  5. ZANTAC [Concomitant]
     Indication: DYSPEPSIA
     Route: 048
  6. LITHIUM CARBONATE [Concomitant]
     Route: 065
  7. OXYCODONE HCL [Concomitant]
     Indication: PAIN
     Route: 048
  8. OXYCONTIN [Concomitant]
     Route: 048

REACTIONS (4)
  - DRUG INEFFECTIVE [None]
  - WITHDRAWAL SYNDROME [None]
  - PRODUCT QUALITY ISSUE [None]
  - WRONG TECHNIQUE IN DRUG USAGE PROCESS [None]
